FAERS Safety Report 9010647 (Version 1)
Quarter: 2013Q1

REPORT INFORMATION
  Report Type: Spontaneous
  Country: US (occurrence: US)
  Receive Date: 20130109
  Receipt Date: 20130109
  Transmission Date: 20140127
  Serious: Yes (Other)
  Sender: FDA-Public Use
  Company Number: US-PFIZER INC-2013008504

PATIENT
  Age: 54 Year
  Sex: Female
  Weight: 60.77 kg

DRUGS (16)
  1. GEODON [Suspect]
     Indication: BIPOLAR DISORDER
     Dosage: 80 MG, 1X/DAY
     Route: 048
  2. CYMBALTA [Concomitant]
     Dosage: UNK
  3. ALBUTEROL [Concomitant]
     Dosage: UNK
     Route: 055
  4. ADVAIR [Concomitant]
     Indication: ASTHMA
     Dosage: UNK
  5. JANUVIA [Concomitant]
     Dosage: UNK
  6. LEVOTHYROXINE [Concomitant]
     Dosage: UNK
  7. OMEPRAZOLE [Concomitant]
     Dosage: UNK
  8. ATENOLOL [Concomitant]
     Indication: HYPERTENSION
     Dosage: UNK
  9. KLONOPIN [Concomitant]
     Dosage: UNK
  10. LAMICTAL [Concomitant]
     Dosage: UNK
  11. CRESTOR [Concomitant]
     Dosage: UNK
  12. VALTREX [Concomitant]
     Dosage: UNK
  13. AMITRIPTYLINE [Concomitant]
     Dosage: UNK
  14. LITHIUM [Concomitant]
     Dosage: UNK
  15. PAXIL [Concomitant]
     Dosage: UNK
  16. PRISTIQ [Concomitant]
     Dosage: UNK

REACTIONS (2)
  - Diabetes mellitus [Recovering/Resolving]
  - Weight decreased [Unknown]
